FAERS Safety Report 10206291 (Version 1)
Quarter: 2014Q2

REPORT INFORMATION
  Report Type: Spontaneous
  Country: PL (occurrence: PL)
  Receive Date: 20140530
  Receipt Date: 20140530
  Transmission Date: 20141212
  Serious: Yes (Other)
  Sender: FDA-Public Use
  Company Number: PL-BAYER-2014-076368

PATIENT
  Age: 48 Year
  Sex: Male
  Weight: 69 kg

DRUGS (9)
  1. CIPROFLOXACIN [Suspect]
     Indication: PYREXIA
     Dosage: 500 MG, BID
     Route: 048
     Dates: start: 20140222, end: 20140222
  2. BISEPTOL [Suspect]
     Indication: LEUKAEMIA
     Dosage: 960 MG, UNK
     Route: 048
     Dates: start: 20140207, end: 20140226
  3. HEVIRAN [Suspect]
     Indication: LEUKAEMIA
     Dosage: 800 MG, UNK
     Route: 048
     Dates: start: 20140207, end: 20140228
  4. APAP [Suspect]
     Indication: PYREXIA
     Dosage: UNK
     Route: 048
     Dates: start: 20140221, end: 20140221
  5. 2-CDA [Concomitant]
     Indication: LEUKAEMIA
     Dosage: UNK
     Dates: start: 20140208, end: 20140212
  6. FILGRASTIM [Concomitant]
     Indication: LEUKAEMIA
     Dosage: UNK
     Route: 058
     Dates: start: 20140213, end: 20140215
  7. ZOFRAN [Concomitant]
     Indication: LEUKAEMIA
     Dosage: UNK
     Dates: start: 20140207, end: 20140212
  8. HEPATIL [Concomitant]
     Indication: LEUKAEMIA
     Dosage: UNK
     Dates: start: 20140207, end: 20140212
  9. LACTULOSE [Concomitant]
     Indication: LEUKAEMIA
     Dosage: UNK
     Dates: start: 20140207, end: 20140212

REACTIONS (2)
  - Pyrexia [Recovering/Resolving]
  - Skin disorder [Recovering/Resolving]
